FAERS Safety Report 14226347 (Version 1)
Quarter: 2017Q4

REPORT INFORMATION
  Report Type: Report from Study
  Country: AU (occurrence: AU)
  Receive Date: 20171127
  Receipt Date: 20171127
  Transmission Date: 20180321
  Serious: Yes (Hospitalization, Other)
  Sender: FDA-Public Use
  Company Number: AU-TOLMAR, INC.-2017AU015958

PATIENT
  Sex: Male

DRUGS (1)
  1. ELIGARD [Suspect]
     Active Substance: LEUPROLIDE ACETATE
     Indication: PROSTATE CANCER
     Dosage: 45 MG, EVERY 6 MONTHS
     Route: 065
     Dates: start: 20170803

REACTIONS (5)
  - Spinal cord compression [Unknown]
  - Spinal cord neoplasm [Unknown]
  - Injection site pain [Unknown]
  - Paralysis [Not Recovered/Not Resolved]
  - Hot flush [Unknown]
